FAERS Safety Report 20181022 (Version 4)
Quarter: 2023Q1

REPORT INFORMATION
  Report Type: Spontaneous
  Country: US (occurrence: US)
  Receive Date: 20211214
  Receipt Date: 20230118
  Transmission Date: 20230418
  Serious: No
  Sender: FDA-Public Use
  Company Number: US-PFIZER INC-202101655500

PATIENT
  Age: 61 Year
  Sex: Female

DRUGS (1)
  1. XELJANZ [Suspect]
     Active Substance: TOFACITINIB CITRATE
     Indication: Rheumatoid arthritis
     Dosage: 5 MG

REACTIONS (7)
  - Pain [Unknown]
  - Memory impairment [Unknown]
  - Acne [Unknown]
  - Illness [Unknown]
  - Hunger [Unknown]
  - Arthralgia [Unknown]
  - Stress [Unknown]
